FAERS Safety Report 16785791 (Version 3)
Quarter: 2019Q4

REPORT INFORMATION
  Report Type: Other
  Country: None (occurrence: US)
  Receive Date: 20190909
  Receipt Date: 20191203
  Transmission Date: 20200122
  Serious: Yes (Hospitalization, Other)
  Sender: FDA-Public Use
  Company Number: US-AMAG PHARMACEUTICALS, INC.-AMAG201904513

PATIENT
  Age: 0 Day
  Sex: Male
  Weight: .81 kg

DRUGS (2)
  1. MAKENA [Suspect]
     Active Substance: HYDROXYPROGESTERONE CAPROATE
     Indication: FOETAL EXPOSURE DURING DELIVERY
     Route: 064
     Dates: start: 20190626, end: 20190718
  2. MAKENA [Suspect]
     Active Substance: HYDROXYPROGESTERONE CAPROATE
     Indication: PREMATURE DELIVERY

REACTIONS (2)
  - Premature baby [Recovered/Resolved]
  - Neonatal hypoxia [Unknown]

NARRATIVE: CASE EVENT DATE: 20190728
